FAERS Safety Report 14716254 (Version 1)
Quarter: 2018Q2

REPORT INFORMATION
  Report Type: Spontaneous
  Country: US (occurrence: US)
  Receive Date: 20180404
  Receipt Date: 20180404
  Transmission Date: 20180711
  Serious: Yes (Other)
  Sender: FDA-Public Use
  Company Number: US-NAPPMUNDI-USA-2018-0143190

PATIENT
  Age: 66 Year
  Sex: Female

DRUGS (4)
  1. GABAPENTIN. [Concomitant]
     Active Substance: GABAPENTIN
     Indication: NEURALGIA
     Route: 048
  2. BUTRANS [Suspect]
     Active Substance: BUPRENORPHINE
     Indication: SACROILIITIS
     Dosage: 7.5 MCG/HR, WEEKLY
     Route: 062
  3. BUTRANS [Suspect]
     Active Substance: BUPRENORPHINE
     Indication: NEURALGIA
  4. BUTRANS [Suspect]
     Active Substance: BUPRENORPHINE
     Indication: SPINAL PAIN
     Dosage: 15 MCG/HR, WEEKLY
     Route: 062

REACTIONS (4)
  - Memory impairment [Recovered/Resolved]
  - Spinal nerve stimulator implantation [Unknown]
  - Spinal operation [Unknown]
  - Aphasia [Recovered/Resolved]

NARRATIVE: CASE EVENT DATE: 201508
